FAERS Safety Report 6239626-1 (Version None)
Quarter: 2009Q2

REPORT INFORMATION
  Report Type: 
  Country: None (occurrence: None)
  Receive Date: 20090622
  Receipt Date: 20090609
  Transmission Date: 20091009
  Serious: Yes (Hospitalization)
  Sender: FDA-Public Use
  Company Number: AU-GENENTECH-285149

PATIENT
  Sex: Female

DRUGS (4)
  1. TRASTUZUMAB [Suspect]
     Indication: BREAST CANCER
     Dosage: 470 MG, Q3W
     Route: 042
     Dates: start: 20090416
  2. DOCETAXEL [Suspect]
     Indication: BREAST CANCER
     Dosage: 190 MG, Q3W
     Route: 042
     Dates: start: 20070417
  3. CALCIUM [Concomitant]
     Indication: DRUG USE FOR UNKNOWN INDICATION
  4. VITAMIN D [Concomitant]
     Indication: DRUG USE FOR UNKNOWN INDICATION

REACTIONS (1)
  - BREAST DISCHARGE [None]
